FAERS Safety Report 13872207 (Version 2)
Quarter: 2017Q4

REPORT INFORMATION
  Report Type: Spontaneous
  Country: US (occurrence: US)
  Receive Date: 20170816
  Receipt Date: 20171115
  Transmission Date: 20180320
  Serious: Yes (Other)
  Sender: FDA-Public Use
  Company Number: US-APOTEX-2017AP016879

PATIENT
  Age: 54 Year
  Sex: Female

DRUGS (2)
  1. MEGESTROL ACETATE ORAL SUSPENSION USP [Suspect]
     Active Substance: MEGESTROL ACETATE
     Indication: ENDOMETRIAL CANCER
     Dosage: 80 MG, BID
     Route: 065
  2. MEGESTROL ACETATE ORAL SUSPENSION USP [Suspect]
     Active Substance: MEGESTROL ACETATE
     Indication: METASTASES TO LUNG

REACTIONS (2)
  - Adrenal insufficiency [Unknown]
  - Weight increased [Unknown]
